FAERS Safety Report 5804191-7 (Version None)
Quarter: 2008Q3

REPORT INFORMATION
  Report Type: 
  Country: None (occurrence: None)
  Receive Date: 20080707
  Receipt Date: 20080625
  Transmission Date: 20090109
  Serious: Yes (Hospitalization)
  Sender: FDA-Public Use
  Company Number: 100#03#2008-03322

PATIENT
  Age: 63 Year
  Sex: Female

DRUGS (13)
  1. CIPROFLOXACIN [Suspect]
     Indication: DRUG USE FOR UNKNOWN INDICATION
     Dates: start: 20080607, end: 20080617
  2. AMLORIDE (AMILORIDE) [Concomitant]
  3. BUMETANIDE [Concomitant]
  4. CARBOCISTEINE (CARBOCISTEINE) [Concomitant]
  5. LEVOTHYROXINE SODIUM [Concomitant]
  6. MORPHINE [Concomitant]
  7. SALBUTAMOL (SALBUTAMOL) [Concomitant]
  8. SERETIDE (FLUTICASONE PROPIONATE, SALMETEROL XINAFOATE) [Concomitant]
  9. SIMVASTATIN [Concomitant]
  10. TIOTROPIUM BROMIDE (TIOTROPIUM BROMIDE) [Concomitant]
  11. TRAMADOL HCL [Concomitant]
  12. VERAPAMIL [Concomitant]
  13. WARFARIN SODIUM [Concomitant]

REACTIONS (3)
  - LIP SWELLING [None]
  - RASH [None]
  - ULCER [None]
